FAERS Safety Report 11836765 (Version 1)
Quarter: 2015Q4

REPORT INFORMATION
  Report Type: Report from Study
  Country: LB (occurrence: None)
  Receive Date: 20151214
  Receipt Date: 20151214
  Transmission Date: 20160305
  Serious: Yes (Other)
  Sender: FDA-Public Use
  Company Number: 13EU000008

PATIENT
  Age: 68 Year
  Sex: Male
  Weight: 82 kg

DRUGS (1)
  1. LIVAZO (PITAVASTATIN) TABLET [Suspect]
     Active Substance: PITAVASTATIN CALCIUM
     Indication: HYPERCHOLESTEROLAEMIA

REACTIONS (5)
  - High density lipoprotein decreased [None]
  - Coronary artery bypass [None]
  - Arthralgia [None]
  - Blood pressure diastolic increased [None]
  - Myalgia [None]
